FAERS Safety Report 15723873 (Version 4)
Quarter: 2019Q1

REPORT INFORMATION
  Report Type: Report from Study
  Country: FR (occurrence: FR)
  Receive Date: 20181214
  Receipt Date: 20190314
  Transmission Date: 20190417
  Serious: Yes (Hospitalization)
  Sender: FDA-Public Use
  Company Number: FR-EXELIXIS-XL18418017545

PATIENT
  Age: 72 Year
  Sex: Male
  Weight: 75 kg

DRUGS (13)
  1. ASPEGIC (ASPIRIN) [Concomitant]
     Active Substance: ASPIRIN
  2. DELICAL BOISSON FRUITEE [Concomitant]
  3. LEVOTHYROX [Concomitant]
     Active Substance: LEVOTHYROXINE
  4. INEXIUM [Concomitant]
     Active Substance: ESOMEPRAZOLE
  5. TARDYFERON [Concomitant]
     Active Substance: FERROUS SULFATE
  6. BLINDED XL184 [Suspect]
     Active Substance: CABOZANTINIB
     Indication: MEDULLARY THYROID CANCER
     Dosage: 140 OR 60 MG, QD
     Route: 048
     Dates: start: 20180216
  7. BLINDED XL184 [Suspect]
     Active Substance: CABOZANTINIB
     Dosage: 60 OR 20 MG, QD
     Route: 048
     Dates: end: 20181108
  8. BLINDED XL184 [Suspect]
     Active Substance: CABOZANTINIB
     Dosage: 60 OR 20 MG, QD
     Route: 048
     Dates: end: 20181108
  9. PRAVASTATINE [Concomitant]
     Active Substance: PRAVASTATIN
  10. ULTRA LEVURE [Concomitant]
     Active Substance: SACCHAROMYCES CEREVISIAE
  11. BLINDED XL184 [Suspect]
     Active Substance: CABOZANTINIB
     Indication: MEDULLARY THYROID CANCER
     Dosage: 140 OR 60 MG, QD
     Route: 048
     Dates: start: 20180216
  12. BISOPROLOL [Concomitant]
     Active Substance: BISOPROLOL
  13. LOPERAMIDE [Concomitant]
     Active Substance: LOPERAMIDE

REACTIONS (2)
  - Cardiac failure [Recovered/Resolved]
  - Oedema peripheral [Not Recovered/Not Resolved]

NARRATIVE: CASE EVENT DATE: 20181204
